FAERS Safety Report 24773704 (Version 1)
Quarter: 2024Q4

REPORT INFORMATION
  Report Type: Spontaneous
  Country: US (occurrence: US)
  Receive Date: 20241225
  Receipt Date: 20241225
  Transmission Date: 20250115
  Serious: Yes (Other)
  Sender: AMGEN
  Company Number: US-AMGEN-USASP2024248113

PATIENT

DRUGS (7)
  1. PEGFILGRASTIM [Suspect]
     Active Substance: PEGFILGRASTIM
     Indication: Product used for unknown indication
     Dosage: 6 MILLIGRAM (DAY TWO FOR EACH OF SIX 21 -DAY CYCLES)
     Route: 065
  2. RITUXIMAB [Suspect]
     Active Substance: RITUXIMAB
     Indication: Diffuse large B-cell lymphoma
     Dosage: UNK
     Route: 065
  3. PREDNISOLONE [Suspect]
     Active Substance: PREDNISOLONE
     Indication: Diffuse large B-cell lymphoma
     Route: 065
  4. CYCLOPHOSPHAMIDE [Suspect]
     Active Substance: CYCLOPHOSPHAMIDE
     Indication: Diffuse large B-cell lymphoma
     Dosage: UNK
     Route: 065
  5. DOXORUBICIN [Suspect]
     Active Substance: DOXORUBICIN
     Indication: Diffuse large B-cell lymphoma
     Dosage: UNK
     Route: 065
  6. VINCRISTINE [Suspect]
     Active Substance: VINCRISTINE
     Indication: Diffuse large B-cell lymphoma
     Route: 065
  7. EVEROLIMUS [Suspect]
     Active Substance: EVEROLIMUS
     Indication: Diffuse large B-cell lymphoma
     Dosage: 10 MILLIGRAM, QD DAILY (DAYS 1-14)
     Route: 065

REACTIONS (8)
  - Haematotoxicity [Unknown]
  - Diffuse large B-cell lymphoma recurrent [Recovered/Resolved]
  - Febrile neutropenia [Unknown]
  - Pneumonitis [Unknown]
  - Follicular lymphoma [Recovered/Resolved]
  - Rash [Unknown]
  - Hyperglycaemia [Unknown]
  - Hypertriglyceridaemia [Unknown]
